FAERS Safety Report 20172327 (Version 1)
Quarter: 2021Q4

REPORT INFORMATION
  Report Type: Spontaneous
  Country: US (occurrence: US)
  Receive Date: 20211210
  Receipt Date: 20211210
  Transmission Date: 20220303
  Serious: No
  Sender: FDA-Public Use
  Company Number: US-KALA PHARAMACEUTICALS-2021KLA00102

PATIENT
  Age: 78 Year
  Sex: Female

DRUGS (1)
  1. INVELTYS [Suspect]
     Active Substance: LOTEPREDNOL ETABONATE
     Indication: Conjunctival operation
     Dosage: UNK, 3X/DAY IN THE RIGHT EYE
     Route: 047
     Dates: start: 20211002

REACTIONS (3)
  - Exposure via skin contact [Not Recovered/Not Resolved]
  - Underdose [Not Recovered/Not Resolved]
  - Product delivery mechanism issue [Not Recovered/Not Resolved]

NARRATIVE: CASE EVENT DATE: 20211002
